FAERS Safety Report 23191162 (Version 1)
Quarter: 2023Q4

REPORT INFORMATION
  Report Type: Spontaneous
  Country: IT (occurrence: IT)
  Receive Date: 20231116
  Receipt Date: 20231116
  Transmission Date: 20240109
  Serious: Yes (Hospitalization)
  Sender: FDA-Public Use
  Company Number: IT-MYLANLABS-2023M1121699

PATIENT
  Age: 55 Year
  Sex: Male

DRUGS (6)
  1. CLOZAPINE [Suspect]
     Active Substance: CLOZAPINE
     Indication: Schizophrenia
     Dosage: UNK (INITIAL DOSE)
     Route: 065
  2. CLOZAPINE [Suspect]
     Active Substance: CLOZAPINE
     Dosage: 500 MILLIGRAM, QD (DOSE GRADUALLY TITRATED TO 500MG DAILY)
     Route: 065
  3. CLOZAPINE [Suspect]
     Active Substance: CLOZAPINE
     Dosage: UNK (AUTONOMOUSLY DISCONTINUED THE THERAPY)
     Route: 065
  4. CLOZAPINE [Suspect]
     Active Substance: CLOZAPINE
     Dosage: UNK (LATER THE THERAPY WAS REINTRODUCED)
     Route: 065
  5. LAMOTRIGINE [Suspect]
     Active Substance: LAMOTRIGINE
     Indication: Schizophrenia
     Dosage: 200 MILLIGRAM, QD (THE PATIENT AUTONOMOUSLY DISCONTINUED THE THERAPY)
     Route: 065
  6. ZUCLOPENTHIXOL DECANOATE [Suspect]
     Active Substance: ZUCLOPENTHIXOL DECANOATE
     Indication: Schizophrenia
     Dosage: 200 MILLIGRAM, EVERY 4 WEEKS (THE PATIENT AUTONOMOUSLY DISCONTINUED THE THERAPY
     Route: 065

REACTIONS (5)
  - Intentional product misuse [Recovering/Resolving]
  - Condition aggravated [Recovering/Resolving]
  - Hallucination, auditory [Recovering/Resolving]
  - Delusion [Recovering/Resolving]
  - Treatment noncompliance [Recovering/Resolving]
